FAERS Safety Report 15924364 (Version 2)
Quarter: 2019Q1

REPORT INFORMATION
  Report Type: Spontaneous
  Country: JP (occurrence: JP)
  Receive Date: 20190206
  Receipt Date: 20190301
  Transmission Date: 20190417
  Serious: Yes (Hospitalization)
  Sender: FDA-Public Use
  Company Number: JP-ROCHE-2256202

PATIENT
  Sex: Female

DRUGS (7)
  1. GAMMA GLOBULIN [Concomitant]
     Active Substance: IMMUNE GLOBULIN NOS
     Route: 065
  2. DENOSINE (JAPAN) [Suspect]
     Active Substance: GANCICLOVIR
     Indication: SYSTEMIC LUPUS ERYTHEMATOSUS
     Route: 041
  3. VALIXA [Suspect]
     Active Substance: VALGANCICLOVIR
     Indication: CYTOMEGALOVIRUS INFECTION
     Dosage: DAILY DOSE WAS REPORTED AS UNKNOWN.
     Route: 048
     Dates: end: 200612
  4. ISCOTIN (JAPAN) [Concomitant]
     Route: 048
  5. CRAVIT [Concomitant]
     Active Substance: LEVOFLOXACIN
     Route: 048
  6. ENDOXAN [Concomitant]
     Active Substance: CYCLOPHOSPHAMIDE
     Route: 041
  7. BAKTAR [Concomitant]
     Active Substance: SULFAMETHOXAZOLE\TRIMETHOPRIM
     Route: 048

REACTIONS (4)
  - Off label use [Unknown]
  - Intentional product use issue [Unknown]
  - Hyperhidrosis [Unknown]
  - Vision blurred [Unknown]
